FAERS Safety Report 6809933-X (Version None)
Quarter: 2010Q2

REPORT INFORMATION
  Report Type: 
  Country: None (occurrence: None)
  Receive Date: 20100630
  Receipt Date: 20100624
  Transmission Date: 20101027
  Serious: Yes (Other)
  Sender: FDA-Public Use
  Company Number: A0856535A

PATIENT
  Sex: Female

DRUGS (1)
  1. WELLBUTRIN [Suspect]
     Indication: DRUG USE FOR UNKNOWN INDICATION
     Route: 048

REACTIONS (9)
  - CONVULSION [None]
  - DIZZINESS [None]
  - DYSPHONIA [None]
  - FEELING JITTERY [None]
  - GASTROENTERITIS VIRAL [None]
  - INSOMNIA [None]
  - NERVOUSNESS [None]
  - TREMOR [None]
  - WITHDRAWAL SYNDROME [None]
